FAERS Safety Report 7419188-3 (Version None)
Quarter: 2011Q2

REPORT INFORMATION
  Report Type: 
  Country: None (occurrence: None)
  Receive Date: 20110415
  Receipt Date: 20110218
  Transmission Date: 20111010
  Serious: No
  Sender: FDA-Public Use
  Company Number: US-B.I. PHARMACEUTICALS,INC./RIDGEFIELD-2011-BP-05813BP

PATIENT
  Sex: Male

DRUGS (6)
  1. TOPROL-XL [Concomitant]
     Indication: HYPERTENSION
     Dosage: 50 MG
  2. FOLBIC [Concomitant]
     Indication: SUPPLEMENTATION THERAPY
  3. ATACAND [Concomitant]
     Indication: HYPERTENSION
  4. PRADAXA [Suspect]
     Indication: ATRIAL FIBRILLATION
     Dosage: 300 MG
     Route: 048
     Dates: start: 20110216
  5. TAMBOCOR [Concomitant]
     Indication: ATRIAL FIBRILLATION
     Dosage: 300 MG
  6. MULTI-VITAMIN [Concomitant]
     Indication: SUPPLEMENTATION THERAPY

REACTIONS (2)
  - MUSCLE SPASMS [None]
  - MUSCLE STRAIN [None]
